FAERS Safety Report 24544498 (Version 4)
Quarter: 2025Q1

REPORT INFORMATION
  Report Type: Spontaneous
  Country: US (occurrence: US)
  Receive Date: 20241024
  Receipt Date: 20250210
  Transmission Date: 20250409
  Serious: No
  Sender: PFIZER
  Company Number: US-PFIZER INC-202400279904

PATIENT
  Age: 11 Year
  Sex: Male
  Weight: 25.6 kg

DRUGS (2)
  1. GENOTROPIN [Suspect]
     Active Substance: SOMATROPIN
     Indication: Growth hormone deficiency
     Dosage: 1.1 MG, DAILY (7 DAYS A WEEK)
     Dates: start: 20241006
  2. ATROPINE [Concomitant]
     Active Substance: ATROPINE

REACTIONS (3)
  - Device use error [Unknown]
  - Device leakage [Unknown]
  - Drug dose omission by device [Unknown]
